FAERS Safety Report 18785619 (Version 8)
Quarter: 2024Q1

REPORT INFORMATION
  Report Type: Report from Study
  Country: US (occurrence: US)
  Receive Date: 20210125
  Receipt Date: 20240219
  Transmission Date: 20240409
  Serious: Yes (Other)
  Sender: FDA-Public Use
  Company Number: US-TAKEDA-2021TUS003202

PATIENT
  Age: 13 Year
  Sex: Male

DRUGS (4)
  1. VONICOG ALFA [Suspect]
     Active Substance: VONICOG ALFA
     Indication: Haemorrhage
     Dosage: 4122 INTERNATIONAL UNIT
     Route: 042
  2. VONICOG ALFA [Suspect]
     Active Substance: VONICOG ALFA
     Dosage: 5088 INTERNATIONAL UNIT
     Route: 042
  3. VONICOG ALFA [Suspect]
     Active Substance: VONICOG ALFA
     Dosage: 5088 INTERNATIONAL UNIT
     Route: 065
  4. VONICOG ALFA [Suspect]
     Active Substance: VONICOG ALFA
     Dosage: 5316 INTERNATIONAL UNIT
     Route: 065

REACTIONS (1)
  - Epistaxis [Not Recovered/Not Resolved]

NARRATIVE: CASE EVENT DATE: 20210519
